FAERS Safety Report 9943495 (Version 2)
Quarter: 2014Q2

REPORT INFORMATION
  Report Type: Report from Study
  Country: AR (occurrence: AR)
  Receive Date: 20140303
  Receipt Date: 20140402
  Transmission Date: 20141212
  Serious: Yes (Other)
  Sender: FDA-Public Use
  Company Number: PHHY2014AR026059

PATIENT
  Sex: Male

DRUGS (1)
  1. TRILEPTAL [Suspect]
     Indication: CONVULSION
     Dosage: 3 DF (3 TABLETS), DAILY
     Route: 048
     Dates: start: 2008, end: 2010

REACTIONS (1)
  - Hepatotoxicity [Recovered/Resolved]
